FAERS Safety Report 6814847-5 (Version None)
Quarter: 2010Q3

REPORT INFORMATION
  Report Type: 
  Country: None (occurrence: None)
  Receive Date: 20100702
  Receipt Date: 20100621
  Transmission Date: 20110219
  Serious: Yes (Other)
  Sender: FDA-Public Use
  Company Number: B0659930A

PATIENT
  Age: 44 Year
  Sex: Female

DRUGS (2)
  1. LAPATINIB [Suspect]
     Dosage: 1250MG PER DAY
     Route: 065
     Dates: start: 20070701, end: 20071101
  2. CAPECITABINE [Suspect]
     Dosage: 2000MGM2 PER DAY
     Route: 065
     Dates: start: 20070701, end: 20071101

REACTIONS (4)
  - ADVERSE EVENT [None]
  - DIARRHOEA [None]
  - ENTERITIS [None]
  - PALMAR-PLANTAR ERYTHRODYSAESTHESIA SYNDROME [None]
